FAERS Safety Report 8300968-7 (Version None)
Quarter: 2012Q2

REPORT INFORMATION
  Report Type: 
  Country: None (occurrence: None)
  Receive Date: 20120420
  Receipt Date: 20120417
  Transmission Date: 20120825
  Serious: Yes (Hospitalization)
  Sender: FDA-Public Use
  Company Number: BR-BAYER-2012-037826

PATIENT
  Sex: Male
  Weight: 75 kg

DRUGS (1)
  1. GADAVIST [Suspect]
     Indication: ANGIOGRAM
     Dosage: 10 ML, ONCE
     Route: 042
     Dates: start: 20120417, end: 20120417

REACTIONS (3)
  - VOMITING [None]
  - TREMOR [None]
  - NAUSEA [None]
